FAERS Safety Report 19655724 (Version 3)
Quarter: 2021Q4

REPORT INFORMATION
  Report Type: Report from Study
  Country: US (occurrence: US)
  Receive Date: 20210804
  Receipt Date: 20211011
  Transmission Date: 20220303
  Serious: No
  Sender: FDA-Public Use
  Company Number: NVSC2021US175239

PATIENT
  Age: 43 Year
  Sex: Female

DRUGS (1)
  1. GILENYA [Suspect]
     Active Substance: FINGOLIMOD HYDROCHLORIDE
     Indication: Product used for unknown indication
     Dosage: 0.5 MG, QD
     Route: 048
     Dates: start: 20210623

REACTIONS (11)
  - Photophobia [Unknown]
  - Thinking abnormal [Unknown]
  - Insomnia [Unknown]
  - Fall [Unknown]
  - Malaise [Unknown]
  - Limb injury [Unknown]
  - Joint injury [Unknown]
  - Migraine [Unknown]
  - Urinary tract infection [Unknown]
  - Fatigue [Unknown]
  - Product dose omission issue [Unknown]

NARRATIVE: CASE EVENT DATE: 20210623
